FAERS Safety Report 4628670-3 (Version None)
Quarter: 2005Q2

REPORT INFORMATION
  Report Type: 
  Country: None (occurrence: None)
  Receive Date: 20050406
  Receipt Date: 20050330
  Transmission Date: 20051028
  Serious: No
  Sender: FDA-Public Use
  Company Number: A500364010/AKO4760AE

PATIENT
  Sex: Female

DRUGS (5)
  1. FLURESS, 0.25% / 0.4%, AKORN, INC [Suspect]
     Indication: OPHTHALMOLOGICAL EXAMINATION
     Dosage: 1 DOSE, TOPICALLY IN BOTH EYES
     Dates: start: 20041118
  2. SALINE EYE DROPS [Concomitant]
  3. ERYTHROMYCIN EYE OINTMENT [Concomitant]
  4. TOBREX EYE DROPS [Concomitant]
  5. SYNTHROID [Concomitant]

REACTIONS (6)
  - DRY EYE [None]
  - EYE PAIN [None]
  - EYELID MARGIN CRUSTING [None]
  - OCULAR HYPERAEMIA [None]
  - ROSACEA [None]
  - VISION BLURRED [None]
